FAERS Safety Report 7921421-6 (Version None)
Quarter: 2011Q4

REPORT INFORMATION
  Report Type: 
  Country: None (occurrence: None)
  Receive Date: 20111117
  Receipt Date: 20111110
  Transmission Date: 20120403
  Serious: Yes (Death)
  Sender: FDA-Public Use
  Company Number: JP-CELGENEUS-087-CCAZA-11072849

PATIENT
  Sex: Male
  Weight: 66 kg

DRUGS (4)
  1. VIDAZA [Suspect]
     Dosage: 75 MILLIGRAM/SQ. METER
     Route: 058
     Dates: start: 20110607, end: 20110610
  2. METHYLPREDNISOLONE ACETATE [Concomitant]
     Indication: STEROID THERAPY
     Route: 065
     Dates: start: 20110701
  3. VIDAZA [Suspect]
     Dosage: 75 MILLIGRAM/SQ. METER
     Route: 058
     Dates: start: 20110613, end: 20110615
  4. MEROPENEM [Concomitant]
     Route: 065
     Dates: start: 20110628

REACTIONS (1)
  - PNEUMONIA [None]
